FAERS Safety Report 5517407-1 (Version None)
Quarter: 2007Q4

REPORT INFORMATION
  Report Type: 
  Country: None (occurrence: None)
  Receive Date: 20071114
  Receipt Date: 20071031
  Transmission Date: 20080405
  Serious: Yes (Death, Hospitalization)
  Sender: FDA-Public Use
  Company Number: GB-RANBAXY-2007RR-11199

PATIENT

DRUGS (6)
  1. DISPERSIBLE ASPIRIN 75MG TABLETS BP [Suspect]
  2. PARACETAMOL TABLETS BP 500MG [Suspect]
  3. CLOBAZAM [Concomitant]
     Dosage: 10 MG, TID
  4. PHENYTOIN [Concomitant]
     Dosage: 250 MG, QD
  5. PRIMIDONE [Concomitant]
     Dosage: 250 MG, TID
  6. PROCHLORPERAZINE [Concomitant]
     Dosage: 10 MG, QD

REACTIONS (6)
  - DISSEMINATED INTRAVASCULAR COAGULATION [None]
  - ENCEPHALOPATHY [None]
  - HEPATIC NECROSIS [None]
  - INTENTIONAL OVERDOSE [None]
  - RENAL FAILURE [None]
  - SEPSIS [None]
